FAERS Safety Report 8932876 (Version 2)
Quarter: 2012Q4

REPORT INFORMATION
  Report Type: 
  Country: US (occurrence: US)
  Receive Date: 20121129
  Receipt Date: 20121207
  Transmission Date: 20130627
  Serious: Yes (Death, Congenital Anomaly)
  Sender: FDA-Public Use
  Company Number: US-BAYER-2012-123785

PATIENT

DRUGS (2)
  1. YASMIN [Suspect]
     Dosage: UNK
     Route: 064
     Dates: start: 2009, end: 2010
  2. YASMIN [Suspect]
     Dosage: UNK
     Route: 064
     Dates: start: 2009, end: 2010

REACTIONS (2)
  - Congenital anomaly [Fatal]
  - Foetal exposure timing unspecified [None]
